FAERS Safety Report 14124693 (Version 1)
Quarter: 2017Q4

REPORT INFORMATION
  Report Type: Spontaneous
  Country: US (occurrence: US)
  Receive Date: 20171025
  Receipt Date: 20171025
  Transmission Date: 20180321
  Serious: Yes (Death)
  Sender: FDA-Public Use
  Company Number: US-JNJCP-30000411541

PATIENT
  Age: 77 Year
  Sex: Female

DRUGS (2)
  1. UNSPECIFIED PADS [Suspect]
     Active Substance: UNSPECIFIED INGREDIENT
     Indication: PRODUCT USED FOR UNKNOWN INDICATION
     Route: 003
  2. JOHNSONS BABY PURE CORNSTARCH MEDICATED [Suspect]
     Active Substance: ZINC OXIDE
     Indication: PRODUCT USED FOR UNKNOWN INDICATION
     Dosage: LITTLE BIT IN SMALL AMOUNT ON HER UNDIES, DAILY
     Route: 061

REACTIONS (1)
  - Vulval cancer [Fatal]

NARRATIVE: CASE EVENT DATE: 201612
